FAERS Safety Report 19901062 (Version 1)
Quarter: 2021Q3

REPORT INFORMATION
  Report Type: Spontaneous
  Country: NL (occurrence: NL)
  Receive Date: 20210929
  Receipt Date: 20210929
  Transmission Date: 20211014
  Serious: Yes (Other)
  Sender: FDA-Public Use
  Company Number: NL-UCBSA-2021045185

PATIENT
  Age: 55 Year
  Sex: Male

DRUGS (6)
  1. LEVETIRACETAM. [Suspect]
     Active Substance: LEVETIRACETAM
     Indication: EPILEPSY
  2. LEVETIRACETAM. [Suspect]
     Active Substance: LEVETIRACETAM
     Indication: AGGRESSION
     Dosage: 500 MILLIGRAM, 2X/DAY (BID)
     Route: 065
  3. LORAZEPAM. [Suspect]
     Active Substance: LORAZEPAM
     Indication: INSOMNIA
     Dosage: 1 MILLIGRAM, 3X/DAY (TID)
     Route: 065
  4. QUETIAPINE. [Suspect]
     Active Substance: QUETIAPINE
     Indication: AGGRESSION
     Dosage: 600 MILLIGRAM, ONCE A DAY
     Route: 065
  5. DIAZEPAM. [Suspect]
     Active Substance: DIAZEPAM
     Indication: AGGRESSION
     Dosage: 2 MILLIGRAM, ONCE A DAY
     Route: 065
  6. LORAZEPAM. [Suspect]
     Active Substance: LORAZEPAM
     Indication: AGGRESSION

REACTIONS (16)
  - Seizure [Unknown]
  - Amnesia [Unknown]
  - Aggression [Not Recovered/Not Resolved]
  - Memory impairment [Unknown]
  - Product use in unapproved indication [Unknown]
  - Drug ineffective [Unknown]
  - Suicidal behaviour [Unknown]
  - Attention deficit hyperactivity disorder [Unknown]
  - Psychotic disorder [Unknown]
  - Agitation [Unknown]
  - Anger [Unknown]
  - Confusional state [Unknown]
  - Affect lability [Unknown]
  - Restlessness [Unknown]
  - Epilepsy [Not Recovered/Not Resolved]
  - Hallucination [Unknown]
